FAERS Safety Report 11754834 (Version 4)
Quarter: 2015Q4

REPORT INFORMATION
  Report Type: Report from Study
  Country: CN (occurrence: CN)
  Receive Date: 20151119
  Receipt Date: 20151202
  Transmission Date: 20160304
  Serious: Yes (Death)
  Sender: FDA-Public Use
  Company Number: CN-BAYER-2015-452267

PATIENT
  Age: 56 Year
  Sex: Male
  Weight: 65 kg

DRUGS (19)
  1. METOCLOPRAMIDE. [Concomitant]
     Active Substance: METOCLOPRAMIDE
     Dosage: 20 MG/D, UNK
     Dates: start: 20150202, end: 20150202
  2. VITAMIN C [Concomitant]
     Active Substance: ASCORBIC ACID
     Dosage: DAILY DOSE 1 G
     Dates: start: 20150204, end: 20150204
  3. FENTANYL. [Concomitant]
     Active Substance: FENTANYL
     Dosage: 4.2 MG/D, UNK
     Dates: start: 20150204, end: 20150204
  4. PIRARUBICIN [Concomitant]
     Active Substance: PIRARUBICIN
     Indication: TRANSCATHETER ARTERIAL CHEMOEMBOLISATION
     Dosage: 40MG
  5. OXALIPLATIN. [Concomitant]
     Active Substance: OXALIPLATIN
     Indication: TRANSCATHETER ARTERIAL CHEMOEMBOLISATION
     Dosage: 100MG
  6. GLUTATHIONE [Concomitant]
     Active Substance: GLUTATHIONE
     Indication: PROPHYLAXIS
     Dosage: DAILY DOSE 1.8 G
     Dates: start: 20141217, end: 20141219
  7. DIAMMONIUM GLYCYRRHIZINATE [Concomitant]
     Active Substance: HERBALS
     Dosage: 450 MG/D, UNK
     Dates: start: 20141219
  8. LANSOPRAZOL RATIOPHARMA [Concomitant]
     Dosage: 30 MG/D, UNK
     Dates: start: 20150204, end: 20150204
  9. MORPHINE [Concomitant]
     Active Substance: MORPHINE
     Dosage: 30 MG/D, UNK
     Dates: start: 20150204, end: 20150204
  10. ENTECAVIR. [Concomitant]
     Active Substance: ENTECAVIR
     Dosage: 0.5 MG/D, UNK
     Dates: start: 20141217, end: 20141219
  11. NEXAVAR [Suspect]
     Active Substance: SORAFENIB
     Indication: HEPATOCELLULAR CARCINOMA
     Dosage: 800 MG, QD
     Route: 048
     Dates: start: 20141220, end: 20150319
  12. VITAMIN B6 [Concomitant]
     Active Substance: PYRIDOXINE HYDROCHLORIDE
     Dosage: DAILY DOSE .2 G
     Dates: start: 20150204, end: 20150204
  13. MAGNESIUM ISOGLYCYRRHIZINATE [Concomitant]
     Indication: PROPHYLAXIS
     Dosage: 200 MG/D, UNK
     Dates: start: 20141217, end: 20141219
  14. ALPROSTADIL. [Concomitant]
     Active Substance: ALPROSTADIL
     Dosage: 20
     Dates: start: 20150202, end: 20150204
  15. ALBUMIN [Concomitant]
     Active Substance: ALBUMIN (HUMAN)
     Dosage: 50 ML/D, UNK
     Dates: start: 20150131, end: 20150202
  16. POTASSIUM CHLORIDE. [Concomitant]
     Active Substance: POTASSIUM CHLORIDE
     Dosage: DAILY DOSE 1 G
     Dates: start: 20150204, end: 20150204
  17. SCILIN M30 [Concomitant]
     Active Substance: INSULIN HUMAN
     Dosage: DAILY DOSE 12 IU
     Dates: start: 20150204, end: 20150204
  18. IODIZED OIL [Concomitant]
     Active Substance: IODIZED OIL
     Indication: TRANSCATHETER ARTERIAL CHEMOEMBOLISATION
  19. CAMPTOTHECIN [Concomitant]
     Active Substance: CAMPTOTHECIN
     Indication: TRANSCATHETER ARTERIAL CHEMOEMBOLISATION
     Dosage: 10 MG

REACTIONS (1)
  - Hepatic failure [Fatal]

NARRATIVE: CASE EVENT DATE: 20150319
